FAERS Safety Report 5250904-5 (Version None)
Quarter: 2007Q1

REPORT INFORMATION
  Report Type: 
  Country: None (occurrence: None)
  Receive Date: 20070228
  Receipt Date: 20060725
  Transmission Date: 20070707
  Serious: No
  Sender: FDA-Public Use
  Company Number: US-GLAXOSMITHKLINE-A0613536A

PATIENT
  Sex: Female

DRUGS (6)
  1. LAMICTAL [Suspect]
     Indication: BIPOLAR DISORDER
     Dosage: 100MG PER DAY
     Route: 048
  2. ABILIFY [Concomitant]
  3. LITHIUM CARBONATE [Concomitant]
  4. PROTONIX [Concomitant]
  5. TRAZODONE HCL [Concomitant]
  6. CALCIUM [Concomitant]

REACTIONS (6)
  - ANXIETY [None]
  - DRY MOUTH [None]
  - DYSGEUSIA [None]
  - DYSPHAGIA [None]
  - PHOBIA [None]
  - THIRST [None]
